FAERS Safety Report 18435915 (Version 1)
Quarter: 2020Q4

REPORT INFORMATION
  Report Type: Spontaneous
  Country: GB (occurrence: GB)
  Receive Date: 20201028
  Receipt Date: 20201028
  Transmission Date: 20210114
  Serious: Yes (Other)
  Sender: FDA-Public Use
  Company Number: GB-TEVA-2020-GB-1841752

PATIENT
  Age: 36 Year
  Sex: Female
  Weight: 76 kg

DRUGS (7)
  1. FEXOFENADINE [Concomitant]
     Active Substance: FEXOFENADINE HYDROCHLORIDE
     Dates: start: 20190424
  2. IBUPROFEN. [Suspect]
     Active Substance: IBUPROFEN
     Dates: start: 20200925
  3. SALBUTAMOL [Concomitant]
     Active Substance: ALBUTEROL
     Dosage: INHALE
     Route: 055
     Dates: start: 20190424
  4. CLENIL MODULITE [Concomitant]
     Active Substance: BECLOMETHASONE DIPROPIONATE
     Dosage: PUFFS
     Dates: start: 20190424
  5. FLUTICASONE FUROATE [Concomitant]
     Active Substance: FLUTICASONE FUROATE
     Dosage: NOSTRIL
     Dates: start: 20190424
  6. SODIUM CROMOGLICATE [Concomitant]
     Active Substance: CROMOLYN SODIUM
     Dates: start: 20190424
  7. LEVOTHYROXINE. [Concomitant]
     Active Substance: LEVOTHYROXINE
     Dosage: 1 DOSAGE FORMS DAILY; EACH MORNING
     Dates: start: 20191008

REACTIONS (1)
  - Swelling face [Recovered/Resolved]

NARRATIVE: CASE EVENT DATE: 20200925
